FAERS Safety Report 23193162 (Version 2)
Quarter: 2023Q4

REPORT INFORMATION
  Report Type: Report from Study
  Country: CO (occurrence: CO)
  Receive Date: 20231116
  Receipt Date: 20231221
  Transmission Date: 20240109
  Serious: Yes (Hospitalization)
  Sender: FDA-Public Use
  Company Number: CO-002147023-NVSC2023CO239285

PATIENT

DRUGS (2)
  1. RUXOLITINIB [Suspect]
     Active Substance: RUXOLITINIB
     Indication: Myelofibrosis
     Dosage: 20 MG, Q12H (EVERY 12 HOURS)
     Route: 048
  2. RUXOLITINIB [Suspect]
     Active Substance: RUXOLITINIB
     Indication: Splenomegaly

REACTIONS (6)
  - Varicose vein ruptured [Unknown]
  - Pyrexia [Unknown]
  - Discouragement [Unknown]
  - Haemorrhage [Unknown]
  - Off label use [Unknown]
  - Malaise [Unknown]
